FAERS Safety Report 17573353 (Version 2)
Quarter: 2020Q1

REPORT INFORMATION
  Report Type: Spontaneous
  Country: CN (occurrence: CN)
  Receive Date: 20200323
  Receipt Date: 20200324
  Transmission Date: 20200409
  Serious: Yes (Death, Other)
  Sender: FDA-Public Use
  Company Number: CN-ROCHE-2565608

PATIENT
  Age: 64 Year
  Sex: Male

DRUGS (16)
  1. CALCIUM FOLINATE [Concomitant]
     Active Substance: LEUCOVORIN CALCIUM
     Indication: METASTASES TO LUNG
  2. FRUQUINTINIB. [Concomitant]
     Active Substance: FRUQUINTINIB
     Indication: METASTASES TO LUNG
     Route: 048
     Dates: start: 2019
  3. OXALIPLATIN. [Concomitant]
     Active Substance: OXALIPLATIN
     Indication: COLON CANCER
     Dosage: ON DAY 1
     Route: 065
     Dates: start: 20180126
  4. XELODA [Suspect]
     Active Substance: CAPECITABINE
     Indication: COLON CANCER
     Dosage: FROM DAY 1 TO DAY 14
     Route: 048
     Dates: start: 20180126
  5. CALCIUM FOLINATE [Concomitant]
     Active Substance: LEUCOVORIN CALCIUM
     Indication: COLON CANCER
     Dosage: TWICE
     Route: 065
     Dates: start: 20181020, end: 20190119
  6. FLUOROURACIL. [Concomitant]
     Active Substance: FLUOROURACIL
     Indication: COLON CANCER
     Dosage: 0.5 UNKNOWN UNIT AND 3.5 UNKNOWN UNIT FOR CONTINUES INTRAVENOUS INJECTION FRO 46?HOURS
     Route: 042
     Dates: start: 20181020, end: 20190119
  7. FRUQUINTINIB. [Concomitant]
     Active Substance: FRUQUINTINIB
     Indication: COLON CANCER
     Route: 048
     Dates: start: 201907, end: 201909
  8. AVASTIN [Suspect]
     Active Substance: BEVACIZUMAB
     Indication: METASTASES TO LUNG
     Route: 042
     Dates: start: 20181020, end: 20190119
  9. RALTITREXED [Concomitant]
     Active Substance: RALTITREXED
     Indication: COLON CANCER
     Route: 065
     Dates: start: 20190327
  10. AVASTIN [Suspect]
     Active Substance: BEVACIZUMAB
     Indication: COLON CANCER
     Dosage: ON DAY 1
     Route: 042
     Dates: start: 20180221, end: 20180828
  11. RALTITREXED [Concomitant]
     Active Substance: RALTITREXED
     Indication: METASTASES TO LUNG
  12. IRINOTECAN [Concomitant]
     Active Substance: IRINOTECAN
     Indication: COLON CANCER
     Route: 065
     Dates: start: 20181020, end: 20190119
  13. IRINOTECAN [Concomitant]
     Active Substance: IRINOTECAN
     Indication: METASTASES TO LUNG
  14. FLUOROURACIL. [Concomitant]
     Active Substance: FLUOROURACIL
     Indication: METASTASES TO LUNG
  15. XELODA [Suspect]
     Active Substance: CAPECITABINE
     Indication: METASTASES TO LUNG
     Dosage: FROM DAY 1 TO DAY 14
     Route: 048
     Dates: start: 20180221, end: 20180828
  16. OXALIPLATIN. [Concomitant]
     Active Substance: OXALIPLATIN
     Indication: METASTASES TO LUNG
     Dosage: ON DAY 1
     Route: 065
     Dates: start: 20180221, end: 20180828

REACTIONS (7)
  - Multiple organ dysfunction syndrome [Fatal]
  - Gastrointestinal disorder [Unknown]
  - Renal hydrocele [Unknown]
  - Asthenia [Unknown]
  - Ileus [Unknown]
  - Anuria [Unknown]
  - Subileus [Unknown]

NARRATIVE: CASE EVENT DATE: 201902
